FAERS Safety Report 4808692-X (Version None)
Quarter: 2005Q4

REPORT INFORMATION
  Report Type: 
  Country: None (occurrence: None)
  Receive Date: 20051025
  Receipt Date: 20051014
  Transmission Date: 20060501
  Serious: Yes (Hospitalization, Other)
  Sender: FDA-Public Use
  Company Number: 200519275GDDC

PATIENT
  Age: 39 Year
  Sex: Female

DRUGS (5)
  1. KETEK [Suspect]
     Indication: INFLUENZA
     Route: 048
     Dates: start: 20050920, end: 20050922
  2. CELESTAMINE TAB [Concomitant]
     Indication: BRONCHITIS
     Dosage: DOSE: UNK
     Route: 048
     Dates: start: 20050920, end: 20050922
  3. BISOLVON [Concomitant]
     Indication: BRONCHITIS
     Dosage: DOSE: UNK
     Route: 048
     Dates: start: 20050920, end: 20050922
  4. FLIXOTIDE [Concomitant]
     Indication: BRONCHITIS
     Dates: start: 20050920
  5. MYPRODOL [Concomitant]
     Dosage: DOSE: UNK
     Route: 048

REACTIONS (1)
  - THROMBOCYTOPENIA [None]
